FAERS Safety Report 9172398 (Version 1)
Quarter: 2012Q4

REPORT INFORMATION
  Report Type: 
  Country: CA (occurrence: CA)
  Receive Date: 20120911
  Receipt Date: 20120911
  Transmission Date: 20130627
  Serious: Yes (Other)
  Sender: FDA-Public Use
  Company Number: CA-MERCK-1209CAN003583

PATIENT

DRUGS (3)
  1. VICTRELIS [Suspect]
     Dosage: UNK
  2. PEGINTERFERON ALFA-2B [Suspect]
     Dosage: 120 Microgram, UNK
     Dates: start: 201204
  3. RIBAVIRIN [Suspect]
     Dosage: UNK
     Dates: start: 201204

REACTIONS (4)
  - Colour blindness [Unknown]
  - Hepatic pain [Unknown]
  - Asthenia [Unknown]
  - Reading disorder [Unknown]
